FAERS Safety Report 10219902 (Version 1)
Quarter: 2014Q2

REPORT INFORMATION
  Report Type: Spontaneous
  Country: TR (occurrence: TR)
  Receive Date: 20140605
  Receipt Date: 20140605
  Transmission Date: 20141212
  Serious: Yes (Hospitalization, Other)
  Sender: FDA-Public Use
  Company Number: TR-BRISTOL-MYERS SQUIBB COMPANY-20867016

PATIENT
  Age: 7 Decade
  Sex: Female
  Weight: 60 kg

DRUGS (3)
  1. ORENCIA [Suspect]
  2. METHOTREXATE [Concomitant]
  3. ARAVA [Concomitant]

REACTIONS (2)
  - Haemorrhage [Unknown]
  - Drug ineffective [Unknown]
